FAERS Safety Report 22518543 (Version 1)
Quarter: 2023Q2

REPORT INFORMATION
  Report Type: Spontaneous
  Country: US (occurrence: US)
  Receive Date: 20230605
  Receipt Date: 20230605
  Transmission Date: 20230722
  Serious: No
  Sender: FDA-Public Use
  Company Number: US-JUBILANT CADISTA PHARMACEUTICALS-2023US000284

PATIENT
  Sex: Male

DRUGS (9)
  1. PREDNISONE [Suspect]
     Active Substance: PREDNISONE
     Indication: Prophylaxis
     Dosage: 100 MG, ONCE PER DAY
     Route: 048
     Dates: start: 202211
  2. PREDNISONE [Suspect]
     Active Substance: PREDNISONE
     Dosage: 40 MG, ONCE PER DAY
     Route: 048
     Dates: start: 20230324
  3. PREDNISONE [Suspect]
     Active Substance: PREDNISONE
     Dosage: 30 MG ONCE PER DAY
     Route: 048
  4. PREDNISONE [Suspect]
     Active Substance: PREDNISONE
     Dosage: 20 MG ONCE PER DAY
     Route: 048
  5. CRESEMBA [Suspect]
     Active Substance: ISAVUCONAZONIUM SULFATE
     Indication: Product used for unknown indication
     Dosage: 372 MG, ONCE PER DAY (2 CAPSULES OF 186 MG)
     Route: 048
     Dates: start: 202209, end: 20221031
  6. CRESEMBA [Suspect]
     Active Substance: ISAVUCONAZONIUM SULFATE
     Dosage: UNK , UNK
     Route: 048
     Dates: start: 20230324
  7. POSACONAZOLE [Concomitant]
     Active Substance: POSACONAZOLE
     Indication: Product used for unknown indication
     Dosage: UNK, UNK
     Dates: start: 20221118, end: 20230322
  8. TIBSOVO [Concomitant]
     Active Substance: IVOSIDENIB
     Indication: Product used for unknown indication
     Dosage: UNK  UNK
     Dates: start: 202211
  9. IVOSIDENIB [Concomitant]
     Active Substance: IVOSIDENIB
     Indication: Acute leukaemia
     Dosage: UNK ,UNK

REACTIONS (2)
  - Abdominal discomfort [Unknown]
  - Malaise [Not Recovered/Not Resolved]

NARRATIVE: CASE EVENT DATE: 20230324
